FAERS Safety Report 5825448-X (Version None)
Quarter: 2008Q3

REPORT INFORMATION
  Report Type: 
  Country: None (occurrence: None)
  Receive Date: 20080729
  Receipt Date: 20071127
  Transmission Date: 20090109
  Serious: No
  Sender: FDA-Public Use
  Company Number: US-BAYER-200713853BCC

PATIENT
  Age: 67 Year
  Sex: Female
  Weight: 79 kg

DRUGS (6)
  1. ALEVE [Suspect]
     Indication: ARTHRITIS
     Dosage: UNIT DOSE: 220 MG
     Route: 048
     Dates: start: 20070101
  2. ASPIRIN [Suspect]
     Indication: CEREBROVASCULAR ACCIDENT PROPHYLAXIS
     Dosage: TOTAL DAILY DOSE: 81 MG  UNIT DOSE: 81 MG
     Route: 048
     Dates: start: 20070101
  3. MULTI-VITAMIN [Concomitant]
  4. FISH OIL [Concomitant]
  5. GLUCOSAMINE W/CHRONDROITIN [Concomitant]
     Indication: ARTHROPATHY
  6. VALSARTAN [Concomitant]
     Indication: HYPERTENSION

REACTIONS (1)
  - ECCHYMOSIS [None]
